FAERS Safety Report 13905169 (Version 1)
Quarter: 2017Q3

REPORT INFORMATION
  Report Type: Report from Study
  Country: HU (occurrence: HU)
  Receive Date: 20170825
  Receipt Date: 20170825
  Transmission Date: 20171127
  Serious: Yes (Hospitalization)
  Sender: FDA-Public Use
  Company Number: HU-ROCHE-1261661

PATIENT
  Age: 57 Year
  Sex: Female
  Weight: 52 kg

DRUGS (17)
  1. CYCLOPHOSPHAMIDE. [Suspect]
     Active Substance: CYCLOPHOSPHAMIDE
     Indication: DIFFUSE LARGE B-CELL LYMPHOMA
     Dosage: DATE OF LAST DOSE (1142 MG) PRIOR TO SAE:31/JUL/2013
     Route: 042
     Dates: start: 20130207
  2. FROMILID UNO [Concomitant]
     Indication: BRONCHITIS
     Route: 065
     Dates: start: 20130715, end: 20130731
  3. SALSOL (HUNGARY) [Concomitant]
     Indication: DEHYDRATION
     Route: 065
     Dates: start: 20130810, end: 20130812
  4. BUFOMIX EASYHALER [Concomitant]
     Indication: CHRONIC OBSTRUCTIVE PULMONARY DISEASE
     Route: 065
     Dates: start: 2008
  5. BERODUAL N [Concomitant]
     Active Substance: FENOTEROL HYDROBROMIDE\IPRATROPIUM BROMIDE
     Indication: CHRONIC OBSTRUCTIVE PULMONARY DISEASE
     Route: 065
     Dates: start: 2008
  6. OBINUTUZUMAB. [Suspect]
     Active Substance: OBINUTUZUMAB
     Indication: DIFFUSE LARGE B-CELL LYMPHOMA
     Dosage: VOLUME OF LAST OBINUTUZUMAB TAKEN:250 ML AND DOSE CONCENTRATION OF LAST DOSE:4 MG/ML?DATE OF LAST DO
     Route: 042
     Dates: start: 20130207
  7. VINCRISTINE [Suspect]
     Active Substance: VINCRISTINE
     Indication: DIFFUSE LARGE B-CELL LYMPHOMA
     Dosage: DATE OF LAST DOSE (2 MG) PRIOR TO SAE:31/JUL/2013.
     Route: 040
     Dates: start: 20130207
  8. TENOFOVIR [Concomitant]
     Active Substance: TENOFOVIR
     Indication: HEPATITIS B REACTIVATION
     Route: 065
     Dates: start: 20130527
  9. MILURIT [Concomitant]
     Active Substance: ALLOPURINOL
     Indication: HYPERURICAEMIA
     Route: 065
     Dates: start: 20130207
  10. FENISTIL (HUNGARY) [Concomitant]
     Route: 065
     Dates: start: 20130207, end: 20130731
  11. DOXORUBICIN [Suspect]
     Active Substance: DOXORUBICIN
     Indication: DIFFUSE LARGE B-CELL LYMPHOMA
     Dosage: DATE OF LAST DOSE (76 MG) PRIOR TO SAE:31/JUL/2013
     Route: 042
     Dates: start: 20130207
  12. PREDNISOLONE. [Suspect]
     Active Substance: PREDNISOLONE
     Indication: DIFFUSE LARGE B-CELL LYMPHOMA
     Dosage: DATE OF LAST DOSE (100 MG) PRIOR TO SAE:04/AUG/2013
     Route: 048
     Dates: start: 20130207
  13. REFLUXON [Concomitant]
     Indication: HYPERCHLORHYDRIA
     Route: 065
     Dates: start: 201301
  14. MEXALEN [Concomitant]
     Active Substance: ACETAMINOPHEN
     Route: 065
     Dates: start: 20130207, end: 20130731
  15. BRETARIS GENUAIR [Concomitant]
     Active Substance: ACLIDINIUM BROMIDE
     Indication: CHRONIC OBSTRUCTIVE PULMONARY DISEASE
     Route: 065
     Dates: start: 2008
  16. THEOSPIREX [Concomitant]
     Active Substance: THEOPHYLLINE ANHYDROUS
     Indication: CHRONIC OBSTRUCTIVE PULMONARY DISEASE
  17. ESOMEPRAZOLE [Concomitant]
     Active Substance: ESOMEPRAZOLE
     Route: 065
     Dates: start: 20130810

REACTIONS (1)
  - Decreased appetite [Recovered/Resolved]

NARRATIVE: CASE EVENT DATE: 20130810
